FAERS Safety Report 9649082 (Version 3)
Quarter: 2013Q4

REPORT INFORMATION
  Report Type: Spontaneous
  Country: AT (occurrence: AT)
  Receive Date: 20131028
  Receipt Date: 20131125
  Transmission Date: 20140711
  Serious: Yes (Hospitalization, Other)
  Sender: FDA-Public Use
  Company Number: AT-BRISTOL-MYERS SQUIBB COMPANY-19649136

PATIENT
  Age: 43 Year
  Sex: Female

DRUGS (8)
  1. ERBITUX [Suspect]
     Indication: COLORECTAL CANCER METASTATIC
     Dosage: 3RD CYCLE ON:17SEP2013,21JUL-17SEP13,NOV13,14NOV13?1 PER 2 WEEK
     Dates: start: 20130721
  2. FOLINIC ACID [Suspect]
     Indication: COLORECTAL CANCER METASTATIC
     Dosage: JUL13-17SEP13
     Dates: start: 201307
  3. IRINOTECAN [Suspect]
     Indication: COLORECTAL CANCER METASTATIC
     Dosage: FOLFIRI
     Dates: start: 201307, end: 20130917
  4. FLUOROURACIL [Suspect]
     Indication: COLORECTAL CANCER METASTATIC
     Dosage: FOLFIRI,JUL13-17SEP13
     Dates: start: 201307
  5. PANTOPRAZOLE [Concomitant]
  6. NOVALGIN [Concomitant]
     Dosage: AS NEEDED
  7. PASPERTIN [Concomitant]
     Dosage: AS NEEDED
  8. GRANISETRON [Concomitant]
     Dosage: CAPS

REACTIONS (5)
  - Diarrhoea haemorrhagic [Recovering/Resolving]
  - Granulocytopenia [Recovering/Resolving]
  - Pyrexia [Recovering/Resolving]
  - Urinary tract infection [Recovering/Resolving]
  - Clostridium difficile colitis [Recovering/Resolving]
